FAERS Safety Report 23055344 (Version 2)
Quarter: 2024Q1

REPORT INFORMATION
  Report Type: Report from Study
  Country: US (occurrence: US)
  Receive Date: 20231011
  Receipt Date: 20240118
  Transmission Date: 20240410
  Serious: Yes (Hospitalization)
  Sender: FDA-Public Use
  Company Number: US-PARATEK PHARMACEUTICALS, INC.-2023PTK00375

PATIENT
  Sex: Female
  Weight: 49.887 kg

DRUGS (12)
  1. NUZYRA [Suspect]
     Active Substance: OMADACYCLINE
     Indication: Mycobacterium avium complex infection
     Dosage: 150 MG, 1X/DAY, EVERY MORNING
     Route: 048
     Dates: start: 202307, end: 2023
  2. NUZYRA [Suspect]
     Active Substance: OMADACYCLINE
     Dosage: 150 MG, 1X/DAY, EVERY MORNING
     Route: 048
     Dates: start: 2023, end: 20230914
  3. NUZYRA [Suspect]
     Active Substance: OMADACYCLINE
     Dosage: 150 MG, 1X/DAY, EVERY MORNING
     Route: 048
     Dates: start: 20230917
  4. NUZYRA [Suspect]
     Active Substance: OMADACYCLINE
     Dosage: 150 MG, 1X/DAY, EVERY MORNING
     Route: 048
  5. CRESTOR [Concomitant]
     Active Substance: ROSUVASTATIN CALCIUM
  6. PROBIOTICS NOS [Concomitant]
     Active Substance: PROBIOTICS NOS
  7. ZOFRAN [Concomitant]
     Active Substance: ONDANSETRON HYDROCHLORIDE
     Dosage: UNK, AS NEEDED
  8. PEPCID [Concomitant]
     Active Substance: FAMOTIDINE
  9. DALIRESP [Concomitant]
     Active Substance: ROFLUMILAST
  10. PROTONIX [Concomitant]
     Active Substance: PANTOPRAZOLE SODIUM
  11. AZITHROMYCIN [Concomitant]
     Active Substance: AZITHROMYCIN
  12. ARIKAYCE [Concomitant]
     Active Substance: AMIKACIN

REACTIONS (8)
  - Loss of consciousness [Recovered/Resolved]
  - Oxygen saturation decreased [Recovering/Resolving]
  - Thyroid disorder [Unknown]
  - Herpes zoster [Unknown]
  - Anaemia [Unknown]
  - Diarrhoea [Recovered/Resolved]
  - Off label use [Not Recovered/Not Resolved]
  - Product dose omission issue [Recovered/Resolved]

NARRATIVE: CASE EVENT DATE: 20230101
